FAERS Safety Report 5756349-3 (Version None)
Quarter: 2008Q2

REPORT INFORMATION
  Report Type: 
  Country: None (occurrence: None)
  Receive Date: 20080528
  Receipt Date: 20080528
  Transmission Date: 20081010
  Serious: Yes (Death, Life-Threatening)
  Sender: FDA-Public Use
  Company Number: None

PATIENT
  Age: 89 Year
  Sex: Female
  Weight: 48.0813 kg

DRUGS (14)
  1. LEVOFLOXACIN [Suspect]
     Indication: EVIDENCE BASED TREATMENT
     Dosage: 750 MG DAILY IV
     Route: 042
     Dates: start: 20080416, end: 20080419
  2. LEVOFLOXACIN [Suspect]
     Indication: PNEUMONIA
     Dosage: 750  EVERY 2 DAYS IV
     Route: 042
     Dates: start: 20080419, end: 20080420
  3. NAMENDA [Concomitant]
  4. REMERON [Concomitant]
  5. KLONOPIN [Concomitant]
  6. AMBIEN [Concomitant]
  7. MIRALAX [Concomitant]
  8. SOMA [Concomitant]
  9. COLACE [Concomitant]
  10. KDUR [Concomitant]
  11. PHENERGAN [Concomitant]
  12. LOVENOX [Concomitant]
  13. VANCOMYCIN HCL [Concomitant]
  14. FLAGYL [Concomitant]

REACTIONS (8)
  - ABDOMINAL PAIN [None]
  - ELECTROLYTE IMBALANCE [None]
  - GASTROINTESTINAL HAEMORRHAGE [None]
  - HEPATIC FAILURE [None]
  - HYPERKALAEMIA [None]
  - HYPOTHERMIA [None]
  - INTESTINAL ISCHAEMIA [None]
  - LOBAR PNEUMONIA [None]
